FAERS Safety Report 8301054-2 (Version None)
Quarter: 2012Q2

REPORT INFORMATION
  Report Type: 
  Country: None (occurrence: None)
  Receive Date: 20120420
  Receipt Date: 20120411
  Transmission Date: 20120825
  Serious: Yes (Other)
  Sender: FDA-Public Use
  Company Number: DE-TEVA-252129ISR

PATIENT
  Sex: Female

DRUGS (3)
  1. COPAXONE [Suspect]
     Indication: MULTIPLE SCLEROSIS
     Dosage: 20 MILLIGRAM;
     Route: 058
     Dates: start: 20081208
  2. CONTRACEPTIVES NOS [Concomitant]
     Indication: CONTRACEPTION
  3. LEVOTHYROXINE SODIUM [Concomitant]
     Route: 048
     Dates: start: 20071001

REACTIONS (3)
  - LYMPHOCYTE COUNT INCREASED [None]
  - CHRONIC LYMPHOCYTIC LEUKAEMIA [None]
  - URTICARIA [None]
